FAERS Safety Report 5165657-9 (Version None)
Quarter: 2006Q4

REPORT INFORMATION
  Report Type: 
  Country: None (occurrence: None)
  Receive Date: 20061128
  Receipt Date: 20061123
  Transmission Date: 20070319
  Serious: Yes (Hospitalization)
  Sender: FDA-Public Use
  Company Number: GBWYE266622AUG03

PATIENT
  Age: 72 Year
  Sex: Male

DRUGS (6)
  1. RAPAMUNE [Suspect]
     Indication: IMMUNOSUPPRESSANT DRUG THERAPY
     Dosage: 1 MG 1X PER 1 DAY
     Dates: start: 20030311
  2. IRBESARTAN [Concomitant]
  3. ATORVASTATIN           (ATORVASTATIN) [Concomitant]
  4. RECORMON                    (ERYTHROPOIETIN HUMAN) [Concomitant]
  5. PREDNISOLONE           (PEDNISOLONE) [Concomitant]
  6. AZATHIOPRINE [Concomitant]

REACTIONS (4)
  - CHEST PAIN [None]
  - EFFUSION [None]
  - LOWER RESPIRATORY TRACT INFECTION [None]
  - LUNG CONSOLIDATION [None]
